FAERS Safety Report 7653968-4 (Version None)
Quarter: 2011Q3

REPORT INFORMATION
  Report Type: 
  Country: None (occurrence: None)
  Receive Date: 20110803
  Receipt Date: 20110801
  Transmission Date: 20111222
  Serious: Yes (Death, Other)
  Sender: FDA-Public Use
  Company Number: US-PFIZER INC-2011117210

PATIENT
  Sex: Male

DRUGS (1)
  1. CHANTIX [Suspect]
     Indication: SMOKING CESSATION THERAPY
     Dosage: 0.5-1MG DAILY
     Route: 048
     Dates: start: 20090527, end: 20090531

REACTIONS (3)
  - ALCOHOL ABUSE [None]
  - ARRHYTHMIA [None]
  - COMPLETED SUICIDE [None]
